FAERS Safety Report 23992971 (Version 5)
Quarter: 2024Q3

REPORT INFORMATION
  Report Type: Spontaneous
  Country: JP (occurrence: JP)
  Receive Date: 20240620
  Receipt Date: 20240723
  Transmission Date: 20241016
  Serious: No
  Sender: ABBVIE
  Company Number: JP-ABBVIE-5806154

PATIENT
  Age: 30 Year
  Sex: Male

DRUGS (15)
  1. SKYRIZI [Suspect]
     Active Substance: RISANKIZUMAB-RZAA
     Indication: Crohn^s disease
     Dosage: FORM STRENGTH: 360 MILLIGRAM
     Route: 058
     Dates: start: 20240521
  2. SKYRIZI [Suspect]
     Active Substance: RISANKIZUMAB-RZAA
     Indication: Crohn^s disease
     Dosage: FORM STRENGTH: 600 MILLIGRAM?LAST ADMIN DATE- 2024
     Route: 041
     Dates: start: 20240227
  3. RABEPRAZOLE SODIUM [Concomitant]
     Active Substance: RABEPRAZOLE SODIUM
     Indication: Gastric ulcer
     Dosage: 10 MILLIGRAM
     Route: 048
  4. RABEPRAZOLE SODIUM [Concomitant]
     Active Substance: RABEPRAZOLE SODIUM
     Indication: Gastric ulcer
     Dosage: FORM STRENGTH: 10 MILLIGRAM
     Route: 048
  5. HERBALS [Concomitant]
     Active Substance: HERBALS
     Indication: Gastrointestinal disorder
     Dosage: 6 SACHET
     Route: 048
  6. AMINO ACIDS\CARBOHYDRATES\MINERALS\SOYBEAN OIL\VITAMINS [Concomitant]
     Active Substance: AMINO ACIDS\CARBOHYDRATES\MINERALS\SOYBEAN OIL\VITAMINS
     Indication: Crohn^s disease
     Dosage: 1 SACHET
     Route: 048
  7. AMINO ACIDS\CARBOHYDRATES\MINERALS\SOYBEAN OIL\VITAMINS [Concomitant]
     Active Substance: AMINO ACIDS\CARBOHYDRATES\MINERALS\SOYBEAN OIL\VITAMINS
     Indication: Crohn^s disease
     Dosage: 1 SACHET?ELEMENTAL DIET
     Route: 048
  8. AZATHIOPRINE [Concomitant]
     Active Substance: AZATHIOPRINE
     Indication: Crohn^s disease
     Dosage: 25 MILLIGRAM
     Route: 048
  9. AZATHIOPRINE [Concomitant]
     Active Substance: AZATHIOPRINE
     Indication: Crohn^s disease
     Dosage: FORM STRENGTH: 50 MILLIGRAM
     Route: 048
  10. MAGNESIUM OXIDE [Concomitant]
     Active Substance: MAGNESIUM OXIDE
     Indication: Gastrointestinal disorder
     Dosage: 250 MILLIGRAM
     Route: 048
  11. MAGNESIUM OXIDE [Concomitant]
     Active Substance: MAGNESIUM OXIDE
     Indication: Gastrointestinal disorder
     Dosage: FORM STRENGTH: 250 MILLIGRAM
     Route: 048
  12. MESALAMINE [Suspect]
     Active Substance: MESALAMINE
     Indication: Crohn^s disease
     Dosage: 3000 MILLIGRAM
     Route: 048
  13. PENTASA [Suspect]
     Active Substance: MESALAMINE
     Indication: Crohn^s disease
     Dosage: FORM STRENGTH: 250 MILLIGRAM
     Route: 048
  14. CLOSTRIDIUM BUTYRICUM SPORES STRAIN M-55 [Concomitant]
     Active Substance: CLOSTRIDIUM BUTYRICUM SPORES STRAIN M-55
     Indication: Gastrointestinal disorder
     Dosage: 3 GRAM
     Route: 048
  15. CLOSTRIDIUM BUTYRICUM SPORES STRAIN M-55 [Concomitant]
     Active Substance: CLOSTRIDIUM BUTYRICUM SPORES STRAIN M-55
     Indication: Gastrointestinal disorder
     Dosage: 3 GRAM
     Route: 048

REACTIONS (2)
  - Crohn^s disease [Unknown]
  - Therapeutic product effect incomplete [Unknown]

NARRATIVE: CASE EVENT DATE: 20240101
